FAERS Safety Report 6378982-0 (Version None)
Quarter: 2009Q3

REPORT INFORMATION
  Report Type: 
  Country: None (occurrence: None)
  Receive Date: 20090928
  Receipt Date: 20090915
  Transmission Date: 20100115
  Serious: Yes (Other)
  Sender: FDA-Public Use
  Company Number: PHHY2009FR39621

PATIENT
  Sex: Female

DRUGS (7)
  1. LAMISIL [Suspect]
     Dosage: 1 DF DAILY
     Dates: start: 20090710, end: 20090731
  2. SULFARLEM [Concomitant]
     Indication: DRY MOUTH
     Dosage: UNK
     Dates: start: 20090501, end: 20090820
  3. SULFARLEM [Concomitant]
     Indication: TONGUE COATED
  4. GYNO-PEVARYL [Concomitant]
     Dosage: UNK
     Dates: start: 20090710, end: 20090831
  5. CARBOSYLANE [Concomitant]
     Dosage: UNK
     Dates: start: 20090710, end: 20090831
  6. SUCRALFATE [Concomitant]
     Dosage: UNK
     Dates: start: 20090710, end: 20090831
  7. PARIET [Concomitant]
     Dosage: UNK
     Dates: start: 20090720

REACTIONS (14)
  - ASTHENIA [None]
  - BILIRUBIN CONJUGATED INCREASED [None]
  - BLOOD BILIRUBIN INCREASED [None]
  - BLOOD IRON INCREASED [None]
  - CHILLS [None]
  - CHOLESTASIS [None]
  - CYTOLYTIC HEPATITIS [None]
  - HEPATIC PAIN [None]
  - HEPATITIS [None]
  - JAUNDICE [None]
  - MICROLITHIASIS [None]
  - MIXED LIVER INJURY [None]
  - OEDEMA [None]
  - SALMONELLOSIS [None]
